FAERS Safety Report 15476952 (Version 1)
Quarter: 2018Q4

REPORT INFORMATION
  Report Type: Spontaneous
  Country: BR (occurrence: BR)
  Receive Date: 20181009
  Receipt Date: 20181009
  Transmission Date: 20190205
  Serious: Yes (Hospitalization)
  Sender: FDA-Public Use
  Company Number: BR-TEVA-2018-BR-962299

PATIENT

DRUGS (5)
  1. SYNTHROID 12 MG [Concomitant]
     Indication: HYPOTHYROIDISM
     Dosage: ONE TABLET DURING FASTING?STARTED 5 YEARS AGO (ESTIMATED DATE 2013)
     Route: 048
  2. FLUXOCOR 20MG [Concomitant]
     Indication: HYPERTENSION
     Dosage: 20 MILLIGRAM DAILY; STARTED 2 YEARS AGO (ESTIMATED DATE 2016)
     Route: 048
  3. LIPITOR 10 MG [Concomitant]
     Indication: BLOOD CHOLESTEROL
     Dosage: 10 MILLIGRAM DAILY; START DATE 3 YEARS AGO (ESTIMATED DATE 2015)
     Route: 048
  4. ACTONEL [Suspect]
     Active Substance: RISEDRONATE SODIUM
     Indication: OSTEOPOROSIS
     Route: 048
     Dates: start: 20180928
  5. OSCAL D [Concomitant]
     Active Substance: CALCIUM CARBONATE\CHOLECALCIFEROL
     Indication: OSTEOPOROSIS
     Dosage: 2 DOSAGE FORMS DAILY; 1 DOSAGE FORM=500MG+400IU (CALCIUM CARBONATE/COLECALCIFEROL)
     Route: 048
     Dates: start: 20180913

REACTIONS (7)
  - Nausea [Not Recovered/Not Resolved]
  - Retching [Not Recovered/Not Resolved]
  - Movement disorder [Unknown]
  - Vomiting [Recovered/Resolved]
  - Abdominal tenderness [Not Recovered/Not Resolved]
  - Decreased appetite [Recovered/Resolved]
  - Diarrhoea [Recovered/Resolved]

NARRATIVE: CASE EVENT DATE: 20180928
